APPROVED DRUG PRODUCT: FOSPHENYTOIN SODIUM
Active Ingredient: FOSPHENYTOIN SODIUM
Strength: EQ 50MG PHENYTOIN NA/ML
Dosage Form/Route: INJECTABLE;INJECTION
Application: A078417 | Product #001 | TE Code: AP
Applicant: SUN PHARMACEUTICAL INDUSTRIES LTD
Approved: Mar 18, 2008 | RLD: No | RS: No | Type: RX